FAERS Safety Report 23458471 (Version 1)
Quarter: 2024Q1

REPORT INFORMATION
  Report Type: Spontaneous
  Country: CN (occurrence: None)
  Receive Date: 20240130
  Receipt Date: 20240130
  Transmission Date: 20240409
  Serious: Yes (Life-Threatening, Hospitalization)
  Sender: FDA-Public Use
  Company Number: 2024A023183

PATIENT
  Age: 22154 Day
  Sex: Female

DRUGS (1)
  1. LYNPARZA [Suspect]
     Active Substance: OLAPARIB
     Indication: Neoplasm
     Route: 048
     Dates: start: 20231001, end: 20240108

REACTIONS (1)
  - Acute leukaemia [Recovering/Resolving]

NARRATIVE: CASE EVENT DATE: 20240112
